FAERS Safety Report 10313938 (Version 1)
Quarter: 2014Q3

REPORT INFORMATION
  Report Type: Spontaneous
  Country: IT (occurrence: None)
  Receive Date: 20140716
  Receipt Date: 20140716
  Transmission Date: 20150326
  Serious: Yes (Other)
  Sender: FDA-Public Use
  Company Number: 2327800

PATIENT
  Age: 49 Year
  Sex: Female

DRUGS (4)
  1. DOCETAXEL [Suspect]
     Active Substance: DOCETAXEL
     Indication: BREAST CANCER
     Dosage: NOT OTHERWISE SPECIFIED
     Route: 042
     Dates: start: 20140424, end: 20140424
  2. CORTISONE [Concomitant]
     Active Substance: CORTISONE\HYDROCORTISONE
  3. ONDANSETRON [Concomitant]
     Active Substance: ONDANSETRON
  4. SALINE [Concomitant]
     Active Substance: SODIUM CHLORIDE

REACTIONS (4)
  - Hyperhidrosis [None]
  - Hypersensitivity [None]
  - Vertigo [None]
  - Erythema [None]

NARRATIVE: CASE EVENT DATE: 20140424
